FAERS Safety Report 11432502 (Version 5)
Quarter: 2016Q1

REPORT INFORMATION
  Report Type: Spontaneous
  Country: US (occurrence: US)
  Receive Date: 20150828
  Receipt Date: 20160205
  Transmission Date: 20160525
  Serious: Yes (Other)
  Sender: FDA-Public Use
  Company Number: US-GLAXOSMITHKLINE-US2015123405

PATIENT
  Age: 27 Year
  Sex: Female

DRUGS (5)
  1. LAMICTAL [Suspect]
     Active Substance: LAMOTRIGINE
     Indication: BIPOLAR DISORDER
     Dosage: 25 MG, UNK
     Route: 048
     Dates: start: 20150427, end: 20150508
  2. ZOLOFT [Concomitant]
     Active Substance: SERTRALINE HYDROCHLORIDE
  3. MICROGESTIN [Concomitant]
     Active Substance: ETHINYL ESTRADIOL\NORETHINDRONE ACETATE
  4. SEROQUEL [Concomitant]
     Active Substance: QUETIAPINE FUMARATE
  5. LEVOXYL [Concomitant]
     Active Substance: LEVOTHYROXINE SODIUM

REACTIONS (43)
  - Depressed level of consciousness [Unknown]
  - Gait disturbance [Unknown]
  - Dyskinesia [Unknown]
  - Catatonia [Unknown]
  - Adjustment disorder [Unknown]
  - Anxiety [Unknown]
  - Adverse event [Unknown]
  - Dysarthria [Unknown]
  - Aphasia [Unknown]
  - Seizure [Recovered/Resolved]
  - Feeling abnormal [Unknown]
  - Tremor [Unknown]
  - Mental disorder [Unknown]
  - Myalgia [Unknown]
  - Condition aggravated [Unknown]
  - Rash [Recovered/Resolved]
  - Stress [Unknown]
  - Drug interaction [Unknown]
  - Pain [Unknown]
  - Muscle spasms [Unknown]
  - Fatigue [Unknown]
  - Ear infection [Unknown]
  - Hypokinesia [Unknown]
  - Ill-defined disorder [Unknown]
  - Emotional distress [Unknown]
  - Adverse drug reaction [Unknown]
  - Speech disorder [Unknown]
  - Emergency care examination [Unknown]
  - Dystonia [Unknown]
  - Weight decreased [Unknown]
  - Confusional state [Unknown]
  - Staring [Unknown]
  - Suicidal ideation [Unknown]
  - Aphasia [Recovered/Resolved]
  - Memory impairment [Not Recovered/Not Resolved]
  - Movement disorder [Unknown]
  - Photophobia [Unknown]
  - Alopecia [Unknown]
  - Dysphemia [Unknown]
  - Fear [Unknown]
  - Somnolence [Unknown]
  - Impaired work ability [Unknown]
  - Feeling of despair [Not Recovered/Not Resolved]

NARRATIVE: CASE EVENT DATE: 20150430
